FAERS Safety Report 13851728 (Version 1)
Quarter: 2017Q3

REPORT INFORMATION
  Report Type: Spontaneous
  Country: US (occurrence: US)
  Receive Date: 20170809
  Receipt Date: 20170809
  Transmission Date: 20171127
  Serious: No
  Sender: FDA-Public Use
  Company Number: US-AKORN PHARMACEUTICALS-2016AKN00948

PATIENT
  Sex: Male

DRUGS (2)
  1. CLINDAMYCIN. [Suspect]
     Active Substance: CLINDAMYCIN
     Route: 061
  2. TRETINOIN. [Suspect]
     Active Substance: TRETINOIN
     Indication: ACNE

REACTIONS (1)
  - Drug ineffective [Unknown]
